FAERS Safety Report 7450532-7 (Version None)
Quarter: 2011Q2

REPORT INFORMATION
  Report Type: 
  Country: None (occurrence: None)
  Receive Date: 20110502
  Receipt Date: 20110426
  Transmission Date: 20111010
  Serious: Yes (Death, Other)
  Sender: FDA-Public Use
  Company Number: PHHY2011JP35517

PATIENT
  Age: 15 Year
  Sex: Female

DRUGS (1)
  1. CYCLOSPORINE [Suspect]
     Indication: LYMPHOHISTIOCYTOSIS

REACTIONS (6)
  - HEPATITIS [None]
  - CYTOMEGALOVIRUS INFECTION [None]
  - PNEUMONIA CYTOMEGALOVIRAL [None]
  - SPLENIC INFARCTION [None]
  - CEREBRAL INFARCTION [None]
  - OESOPHAGEAL CANDIDIASIS [None]
